FAERS Safety Report 8068461-7 (Version None)
Quarter: 2012Q1

REPORT INFORMATION
  Report Type: 
  Country: None (occurrence: None)
  Receive Date: 20120124
  Receipt Date: 20111027
  Transmission Date: 20120608
  Serious: No
  Sender: FDA-Public Use
  Company Number: US-AMGEN-USASP2011055961

PATIENT
  Age: 80 Year
  Sex: Female

DRUGS (6)
  1. VITAMIN D [Concomitant]
     Dosage: 1 UNK, UNK
  2. MULTIVITAMIN                       /00097801/ [Concomitant]
  3. TUMS                               /00193601/ [Concomitant]
     Dosage: UNK
  4. PROLIA [Suspect]
     Indication: OSTEOPENIA
     Dosage: 60 MG, Q6MO
     Dates: start: 20110101
  5. NEXIUM [Concomitant]
     Dosage: UNK
  6. ASPIRIN [Concomitant]
     Dosage: 1 MG, UNK

REACTIONS (2)
  - DRY MOUTH [None]
  - TONGUE COATED [None]
